FAERS Safety Report 4467924-0 (Version None)
Quarter: 2004Q4

REPORT INFORMATION
  Report Type: 
  Country: None (occurrence: None)
  Receive Date: 20041004
  Receipt Date: 20040923
  Transmission Date: 20050328
  Serious: Yes (Hospitalization, Other)
  Sender: FDA-Public Use
  Company Number: 2004-09-1121

PATIENT
  Age: 35 Year
  Sex: Female

DRUGS (1)
  1. TEMODAL [Suspect]
     Indication: METASTATIC MALIGNANT MELANOMA
     Dosage: 250 MG QD ORAL
     Route: 048
     Dates: start: 20040201

REACTIONS (1)
  - INTESTINAL ISCHAEMIA [None]
